FAERS Safety Report 7781792-0 (Version None)
Quarter: 2011Q3

REPORT INFORMATION
  Report Type: 
  Country: None (occurrence: None)
  Receive Date: 20110927
  Receipt Date: 20110905
  Transmission Date: 20111222
  Serious: Yes (Other)
  Sender: FDA-Public Use
  Company Number: GB-GLAXOSMITHKLINE-B0745364A

PATIENT
  Sex: Female

DRUGS (1)
  1. SERETIDE [Suspect]
     Indication: ASTHMA
     Route: 055
     Dates: start: 20070401

REACTIONS (6)
  - WEIGHT INCREASED [None]
  - DIABETES MELLITUS [None]
  - OBESITY [None]
  - FAT TISSUE INCREASED [None]
  - ASTHMA [None]
  - CUSHINGOID [None]
